FAERS Safety Report 10009595 (Version 2)
Quarter: 2014Q1

REPORT INFORMATION
  Report Type: Report from Study
  Country: BE (occurrence: BE)
  Receive Date: 20140313
  Receipt Date: 20140313
  Transmission Date: 20141002
  Serious: Yes (Hospitalization)
  Sender: FDA-Public Use
  Company Number: BE-TEVA-364080USA

PATIENT
  Age: 51 Year
  Sex: Female
  Weight: 71 kg

DRUGS (15)
  1. BENDAMUSTINE [Suspect]
     Indication: LYMPHOMA
     Route: 042
     Dates: start: 20111021
  2. RITUXIMAB [Suspect]
     Indication: LYMPHOMA
     Dosage: DOSE CONCENTRATION: 0.69 MG/ML
     Route: 042
     Dates: start: 20111021
  3. EMCORETIC [Concomitant]
     Indication: HYPERTENSION
     Dates: start: 1992
  4. OLMEDAY PLUS [Concomitant]
     Indication: HYPERTENSION
     Dates: start: 1992
  5. ROCEPHIN [Concomitant]
     Indication: INFECTION
     Dates: start: 20120819, end: 20120822
  6. AUGMENTIN [Concomitant]
     Indication: INFECTION
     Dates: start: 20120823, end: 20120828
  7. ZOVIRAX [Concomitant]
     Indication: INFECTION
     Dates: start: 20120904, end: 20121106
  8. BELSAR PLUS [Concomitant]
     Indication: HYPERTENSION
     Dates: start: 20120819, end: 20120911
  9. BELSAR PLUS [Concomitant]
     Dates: start: 20120916
  10. NATRIUM BICARBONAT [Concomitant]
     Indication: INFECTION
     Dates: start: 20120821, end: 20120821
  11. OMEPRAZOLE [Concomitant]
     Indication: GASTRIC ULCER
     Dates: start: 20120911, end: 20120915
  12. PANTOMED [Concomitant]
     Indication: GASTRIC ULCER
     Dates: start: 20120816
  13. NEUPOGEN [Concomitant]
     Indication: NEUTROPENIA
     Dates: start: 20121013, end: 20121128
  14. PARACETAMOL [Concomitant]
     Indication: PYREXIA
     Dates: start: 20120820, end: 20120905
  15. ALIZAPRIDE [Concomitant]
     Indication: NAUSEA
     Dates: start: 20121110, end: 20121113

REACTIONS (2)
  - Vaginal ulceration [Recovered/Resolved]
  - Pain [Recovered/Resolved]
